FAERS Safety Report 4841034-2 (Version None)
Quarter: 2005Q4

REPORT INFORMATION
  Report Type: 
  Country: None (occurrence: None)
  Receive Date: 20051130
  Receipt Date: 20050830
  Transmission Date: 20060501
  Serious: No
  Sender: FDA-Public Use
  Company Number: US-BRISTOL-MYERS SQUIBB COMPANY-13095328

PATIENT
  Age: 28 Year
  Sex: Male

DRUGS (1)
  1. ABILIFY [Suspect]
     Indication: SCHIZOPHRENIA
     Dosage: INCREASED FROM 15 MG TO 20 MG THE 7TH MONTH OF THERAPY
     Route: 048
     Dates: start: 20040901

REACTIONS (1)
  - DYSKINESIA [None]
